FAERS Safety Report 10802434 (Version 2)
Quarter: 2015Q1

REPORT INFORMATION
  Report Type: Spontaneous
  Country: NL (occurrence: NL)
  Receive Date: 20150217
  Receipt Date: 20150224
  Transmission Date: 20150721
  Serious: Yes (Hospitalization)
  Sender: FDA-Public Use
  Company Number: NL-ASTELLAS-2015US001360

PATIENT
  Age: 72 Year
  Sex: Male

DRUGS (2)
  1. TIMOPTOL [Concomitant]
     Active Substance: TIMOLOL
     Indication: GLAUCOMA
     Dosage: UNK UNK, UNKNOWN FREQ.
     Route: 065
  2. VESICARE [Suspect]
     Active Substance: SOLIFENACIN SUCCINATE
     Indication: BLADDER IRRITATION
     Dosage: 5 MG, ONCE DAILY (DURING DINNER)
     Route: 048
     Dates: start: 20141129, end: 20141211

REACTIONS (6)
  - Pollakiuria [Unknown]
  - Nocturia [Unknown]
  - Product use issue [Unknown]
  - Dysgeusia [Recovered/Resolved]
  - Dry mouth [Recovered/Resolved]
  - Fluid retention [Unknown]

NARRATIVE: CASE EVENT DATE: 201411
